FAERS Safety Report 8296345-8 (Version None)
Quarter: 2012Q2

REPORT INFORMATION
  Report Type: 
  Country: None (occurrence: None)
  Receive Date: 20120418
  Receipt Date: 20120404
  Transmission Date: 20120825
  Serious: Yes (Other)
  Sender: FDA-Public Use
  Company Number: AU-CELGENEUS-008-21880-12040528

PATIENT
  Sex: Female
  Weight: 75 kg

DRUGS (6)
  1. REVLIMID [Suspect]
     Indication: DIFFUSE LARGE B-CELL LYMPHOMA
     Dosage: 25 MILLIGRAM
     Route: 048
     Dates: start: 20111108
  2. OSTELIN [Concomitant]
     Indication: PROPHYLAXIS
     Route: 065
     Dates: start: 20090101
  3. VITAMIN D [Concomitant]
     Indication: PROPHYLAXIS
     Route: 065
     Dates: start: 20090101
  4. IRBESARTAN [Concomitant]
     Indication: HYPERTENSION
     Route: 065
     Dates: start: 20110401
  5. ASPIRIN [Concomitant]
     Indication: PROPHYLAXIS
     Route: 065
     Dates: start: 20000101
  6. REVLIMID [Suspect]
     Dosage: 25 MILLIGRAM
     Route: 048
     Dates: start: 20120301, end: 20120322

REACTIONS (2)
  - HEPATIC LESION [None]
  - ANAEMIA [None]
